FAERS Safety Report 11798282 (Version 5)
Quarter: 2017Q2

REPORT INFORMATION
  Report Type: Spontaneous
  Country: JP (occurrence: JP)
  Receive Date: 20151203
  Receipt Date: 20170608
  Transmission Date: 20170829
  Serious: Yes (Other)
  Sender: FDA-Public Use
  Company Number: JP-JNJFOC-20151126112

PATIENT

DRUGS (5)
  1. PEGINTRON [Suspect]
     Active Substance: PEGINTERFERON ALFA-2B
     Indication: CHRONIC HEPATITIS C
     Dosage: PLANNED DURATION - 24 WEEKS
     Route: 058
  2. COPEGUS [Suspect]
     Active Substance: RIBAVIRIN
     Indication: CHRONIC HEPATITIS C
     Dosage: DOSE REDUCED
     Route: 048
  3. PEGASYS [Suspect]
     Active Substance: PEGINTERFERON ALFA-2A
     Indication: CHRONIC HEPATITIS C
     Dosage: PLANNED DURATION - 24 WEEKS
     Route: 058
  4. COPEGUS [Suspect]
     Active Substance: RIBAVIRIN
     Indication: CHRONIC HEPATITIS C
     Dosage: 200-800 MG DEPENDING ON THE BODY WEIGHT AFTER BREAKFAST AND DINNER. PLANNED DURATION - 24 WEEKS
     Route: 048
  5. SOVRIAD [Suspect]
     Active Substance: SIMEPREVIR
     Indication: CHRONIC HEPATITIS C
     Dosage: PLANNED DURATION OF 12 WEEKS
     Route: 048

REACTIONS (10)
  - Depression [Unknown]
  - Drug ineffective [Unknown]
  - Pneumonia [Unknown]
  - Pruritus [Unknown]
  - Headache [Unknown]
  - Adverse event [Unknown]
  - Neoplasm malignant [Unknown]
  - Anaemia [Unknown]
  - Cardiac failure [Unknown]
  - Viral load increased [Unknown]
